FAERS Safety Report 10086332 (Version 1)
Quarter: 2014Q2

REPORT INFORMATION
  Report Type: Spontaneous
  Country: US (occurrence: None)
  Receive Date: 20140417
  Receipt Date: 20140417
  Transmission Date: 20141212
  Serious: Yes (Other)
  Sender: FDA-Public Use
  Company Number: None

PATIENT
  Age: 69 Year
  Sex: Female
  Weight: 78.02 kg

DRUGS (1)
  1. LISINOPRIL [Suspect]
     Indication: HYPERTENSION
     Route: 048
     Dates: start: 20130515, end: 20140415

REACTIONS (6)
  - Diplopia [None]
  - Muscular weakness [None]
  - Muscle twitching [None]
  - Weight decreased [None]
  - Nervous system disorder [None]
  - Dizziness [None]
